FAERS Safety Report 4605875-9 (Version None)
Quarter: 2005Q2

REPORT INFORMATION
  Report Type: 
  Country: None (occurrence: None)
  Receive Date: 20050303
  Receipt Date: 20040114
  Transmission Date: 20051028
  Serious: No
  Sender: FDA-Public Use
  Company Number: 200318254BWH

PATIENT
  Age: 65 Year
  Sex: Male
  Weight: 58.9676 kg

DRUGS (3)
  1. LEVITRA [Suspect]
     Dosage: 5 MG, PRN, ORAL;  10 MG, QD, ORAL;  20 MG, QD, ORAL
     Route: 048
  2. PLETAL [Concomitant]
  3. VITAMINS [Concomitant]

REACTIONS (3)
  - DRUG INEFFECTIVE [None]
  - ERECTILE DYSFUNCTION [None]
  - RASH [None]
